FAERS Safety Report 23101453 (Version 1)
Quarter: 2023Q4

REPORT INFORMATION
  Report Type: Spontaneous
  Country: US (occurrence: US)
  Receive Date: 20231024
  Receipt Date: 20231024
  Transmission Date: 20240109
  Serious: No
  Sender: FDA-Public Use
  Company Number: US-ChurchDwight-2023-CDW-01624

PATIENT
  Age: 34 Year
  Sex: Female

DRUGS (1)
  1. ZICAM COLD REMEDY RAPIDMELTS [Suspect]
     Active Substance: HOMEOPATHICS\ZINC ACETATE\ZINC GLUCONATE
     Indication: Product used for unknown indication
     Route: 048

REACTIONS (4)
  - Ageusia [Not Recovered/Not Resolved]
  - Hyposmia [Unknown]
  - Glossitis [Unknown]
  - Swollen tongue [Unknown]
